FAERS Safety Report 10089423 (Version 1)
Quarter: 2014Q2

REPORT INFORMATION
  Report Type: Spontaneous
  Country: JP (occurrence: JP)
  Receive Date: 20140421
  Receipt Date: 20140421
  Transmission Date: 20141212
  Serious: Yes (Other)
  Sender: FDA-Public Use
  Company Number: JP-UCBSA-118581

PATIENT
  Age: 79 Year
  Sex: Male

DRUGS (1)
  1. XYZAL [Suspect]
     Indication: PRURITUS
     Route: 048
     Dates: start: 20131004

REACTIONS (1)
  - Loss of consciousness [Recovered/Resolved]
